FAERS Safety Report 4848421-7 (Version None)
Quarter: 2005Q4

REPORT INFORMATION
  Report Type: 
  Country: None (occurrence: None)
  Receive Date: 20051208
  Receipt Date: 20051201
  Transmission Date: 20060501
  Serious: Yes (Hospitalization)
  Sender: FDA-Public Use
  Company Number: US-GLAXOSMITHKLINE-A0584285A

PATIENT
  Age: 71 Year
  Sex: Male

DRUGS (5)
  1. LAMICTAL [Suspect]
     Indication: EPILEPSY
     Dosage: 50MG UNKNOWN
     Route: 048
  2. CORTISONE ACETATE TAB [Concomitant]
  3. SYNTHROID [Concomitant]
  4. AMANTADINE HCL [Concomitant]
  5. ZANAFLEX [Concomitant]

REACTIONS (8)
  - CONFUSIONAL STATE [None]
  - CONVULSION [None]
  - DIFFICULTY IN WALKING [None]
  - DYSARTHRIA [None]
  - FALL [None]
  - HALLUCINATION [None]
  - HIP FRACTURE [None]
  - MENTAL STATUS CHANGES [None]
